FAERS Safety Report 5338711-6 (Version None)
Quarter: 2007Q2

REPORT INFORMATION
  Report Type: 
  Country: None (occurrence: None)
  Receive Date: 20070530
  Receipt Date: 20070530
  Transmission Date: 20071010
  Serious: Yes (Death, Hospitalization)
  Sender: FDA-Public Use
  Company Number: B0467902A

PATIENT
  Age: 80 Year
  Sex: Female

DRUGS (2)
  1. ARIXTRA [Suspect]
     Dosage: 2.5MG PER DAY
     Route: 058
  2. KARDEGIC [Concomitant]

REACTIONS (2)
  - COMA [None]
  - INTRAVENTRICULAR HAEMORRHAGE [None]
